FAERS Safety Report 6347220-7 (Version None)
Quarter: 2009Q3

REPORT INFORMATION
  Report Type: 
  Country: None (occurrence: None)
  Receive Date: 20090910
  Receipt Date: 20090902
  Transmission Date: 20100115
  Serious: Yes (Hospitalization)
  Sender: FDA-Public Use
  Company Number: ZA-ROCHE-654505

PATIENT
  Sex: Male
  Weight: 107 kg

DRUGS (2)
  1. INTERFERON ALFA [Suspect]
     Dosage: DOSE REPORTED AS 9MU
     Route: 058
     Dates: start: 20090710
  2. BEVACIZUMAB [Suspect]
     Route: 042
     Dates: start: 20090710

REACTIONS (1)
  - PAROTITIS [None]
